FAERS Safety Report 9343807 (Version 3)
Quarter: 2013Q3

REPORT INFORMATION
  Report Type: Spontaneous
  Country: US (occurrence: US)
  Receive Date: 20130612
  Receipt Date: 20130724
  Transmission Date: 20140515
  Serious: Yes (Hospitalization, Other)
  Sender: FDA-Public Use
  Company Number: US-BAYER-2013-070545

PATIENT
  Age: 33 Year
  Sex: Female
  Weight: 63.49 kg

DRUGS (1)
  1. MIRENA [Suspect]
     Indication: CONTRACEPTION
     Dosage: 20 MCG/24HR, CONT
     Route: 015
     Dates: start: 20081008, end: 20130301

REACTIONS (7)
  - Device dislocation [Recovered/Resolved]
  - Vaginal haemorrhage [None]
  - Menstruation irregular [None]
  - Acne [None]
  - Fear [None]
  - Stress [None]
  - Device difficult to use [Recovered/Resolved]
